FAERS Safety Report 16032158 (Version 1)
Quarter: 2019Q1

REPORT INFORMATION
  Report Type: Spontaneous
  Country: US (occurrence: US)
  Receive Date: 20190304
  Receipt Date: 20190304
  Transmission Date: 20190418
  Serious: Yes (Hospitalization)
  Sender: FDA-Public Use
  Company Number: US-ALLERGAN-1908105US

PATIENT
  Sex: Female

DRUGS (3)
  1. LEVONORGESTREL UNK [Suspect]
     Active Substance: LEVONORGESTREL
     Indication: PRODUCT USED FOR UNKNOWN INDICATION
     Dosage: 52 MG, SINGLE
     Route: 015
  2. ANESTHETICS, LOCAL [Concomitant]
     Active Substance: UNSPECIFIED INGREDIENT
     Indication: PREMEDICATION
  3. BETADINE [Concomitant]
     Active Substance: POVIDONE-IODINE
     Indication: PREMEDICATION

REACTIONS (1)
  - Streptococcal endocarditis [Unknown]
